FAERS Safety Report 23841080 (Version 2)
Quarter: 2024Q3

REPORT INFORMATION
  Report Type: Report from Study
  Country: JP (occurrence: JP)
  Receive Date: 20240510
  Receipt Date: 20240711
  Transmission Date: 20241016
  Serious: Yes (Hospitalization, Other)
  Sender: RECORDATI
  Company Number: JP-RECORDATI RARE DISEASE INC.-2023007682

PATIENT

DRUGS (17)
  1. NEOPROFEN [Suspect]
     Active Substance: IBUPROFEN LYSINE
     Indication: Patent ductus arteriosus
     Dosage: 6 MILLIGRAM
     Route: 042
     Dates: start: 20210915, end: 20210915
  2. NEOPROFEN [Suspect]
     Active Substance: IBUPROFEN LYSINE
     Dosage: 5.5 MILLIGRAM
     Route: 042
     Dates: start: 20210922, end: 20210922
  3. NEOPROFEN [Suspect]
     Active Substance: IBUPROFEN LYSINE
     Dosage: 6 MILLIGRAM
     Route: 042
     Dates: start: 20211002, end: 20211002
  4. NEOPROFEN [Suspect]
     Active Substance: IBUPROFEN LYSINE
     Dosage: 3 MILLIGRAM
     Route: 042
     Dates: start: 20211003, end: 20211003
  5. NEOPROFEN [Suspect]
     Active Substance: IBUPROFEN LYSINE
     Dosage: 3 MILLIGRAM
     Route: 042
     Dates: start: 20211004, end: 20211004
  6. AMPICILLIN SODIUM\SULBACTAM SODIUM [Concomitant]
     Active Substance: AMPICILLIN SODIUM\SULBACTAM SODIUM
     Indication: Prophylaxis
     Dosage: UNK
     Route: 042
     Dates: start: 20210914, end: 20210917
  7. AZACTAM [Concomitant]
     Active Substance: AZTREONAM
     Indication: Prophylaxis
     Dosage: UNK
     Route: 042
     Dates: start: 20210914, end: 20210917
  8. FOSFLUCONAZOLE [Concomitant]
     Active Substance: FOSFLUCONAZOLE
     Indication: Prophylaxis
     Dosage: UNK
     Route: 042
     Dates: start: 20210914, end: 20210917
  9. DOPAMINE HYDROCHLORIDE [Concomitant]
     Active Substance: DOPAMINE HYDROCHLORIDE
     Indication: Blood pressure decreased
     Dosage: UNK
     Route: 042
     Dates: start: 20210919, end: 20210922
  10. DOPAMINE HYDROCHLORIDE [Concomitant]
     Active Substance: DOPAMINE HYDROCHLORIDE
     Dosage: UNK
     Route: 042
     Dates: start: 20210924, end: 20211018
  11. DOBUTREX [Concomitant]
     Active Substance: DOBUTAMINE HYDROCHLORIDE
     Indication: Blood pressure decreased
     Dosage: UNK
     Route: 042
     Dates: start: 20210919, end: 20210922
  12. DOBUTREX [Concomitant]
     Active Substance: DOBUTAMINE HYDROCHLORIDE
     Dosage: UNK
     Route: 042
     Dates: start: 20210924, end: 20211018
  13. MEROPENEM [Concomitant]
     Active Substance: MEROPENEM
     Indication: Prophylaxis
     Dosage: UNK
     Route: 042
     Dates: start: 20210928, end: 20211002
  14. TEICOPLANIN [Concomitant]
     Active Substance: TEICOPLANIN
     Indication: Prophylaxis
     Dosage: UNK
     Route: 042
     Dates: start: 20210928, end: 20211002
  15. MICAFUNGIN [MICAFUNGIN SODIUM] [Concomitant]
     Indication: Prophylaxis
     Dosage: UNK
     Route: 042
     Dates: start: 20210928, end: 20211002
  16. CAFFEINE [Concomitant]
     Active Substance: CAFFEINE
     Indication: Infantile apnoea
     Dosage: UNK
     Route: 042
     Dates: start: 20211001, end: 20211014
  17. FLUTICASONE PROPIONATE [Concomitant]
     Active Substance: FLUTICASONE PROPIONATE
     Indication: Prophylaxis
     Dosage: UNK
     Dates: start: 20210921, end: 20211004

REACTIONS (7)
  - Bronchopulmonary dysplasia [Recovered/Resolved]
  - Intraventricular haemorrhage [Recovered/Resolved]
  - Pulmonary haemorrhage [Recovered/Resolved]
  - Anaemia [Recovered/Resolved]
  - Oliguria [Recovered/Resolved]
  - Blood pressure decreased [Recovered/Resolved]
  - Meconium ileus [Recovered/Resolved]

NARRATIVE: CASE EVENT DATE: 20210918
